FAERS Safety Report 16251312 (Version 1)
Quarter: 2019Q2

REPORT INFORMATION
  Report Type: Spontaneous
  Country: US (occurrence: US)
  Receive Date: 20190429
  Receipt Date: 20190429
  Transmission Date: 20190711
  Serious: Yes (Other)
  Sender: FDA-Public Use
  Company Number: US-BAYER-2019-081462

PATIENT
  Age: 33 Year
  Sex: Female
  Weight: 73 kg

DRUGS (1)
  1. MIDOL COMPLETE [Suspect]
     Active Substance: ACETAMINOPHEN\CAFFEINE\PYRILAMINE MALEATE
     Indication: PAIN
     Dosage: 1 DF
     Route: 048

REACTIONS (3)
  - Visual impairment [Unknown]
  - Cold sweat [Unknown]
  - Tinnitus [Unknown]

NARRATIVE: CASE EVENT DATE: 2018
